FAERS Safety Report 9593469 (Version 1)
Quarter: 2013Q3

REPORT INFORMATION
  Report Type: Spontaneous
  Country: US (occurrence: None)
  Receive Date: 20130930
  Receipt Date: 20130930
  Transmission Date: 20140515
  Serious: No
  Sender: FDA-Public Use
  Company Number: 1000046004

PATIENT
  Age: 68 Year
  Sex: Female

DRUGS (4)
  1. LINZESS (LINACLOTIDE) [Suspect]
     Indication: IRRITABLE BOWEL SYNDROME
     Dates: start: 20130612
  2. SIMVASTATIN [Concomitant]
  3. SYNTHROID (LEVOTHYROXINE) [Concomitant]
  4. METOPROLOL [Concomitant]

REACTIONS (5)
  - Palpitations [None]
  - Dizziness [None]
  - Nausea [None]
  - Headache [None]
  - Flatulence [None]
